FAERS Safety Report 7767653-1 (Version None)
Quarter: 2011Q3

REPORT INFORMATION
  Report Type: 
  Country: None (occurrence: None)
  Receive Date: 20110922
  Receipt Date: 20110914
  Transmission Date: 20111222
  Serious: Yes (Other)
  Sender: FDA-Public Use
  Company Number: DE-SANOFI-AVENTIS-2011SA052732

PATIENT
  Age: 47 Year
  Sex: Female
  Weight: 57 kg

DRUGS (6)
  1. DEXAMETHASONE [Concomitant]
     Route: 048
     Dates: start: 20110727, end: 20110731
  2. DEXAMETHASONE [Concomitant]
     Indication: ANTIEMETIC SUPPORTIVE CARE
     Route: 042
  3. TAXOTERE [Suspect]
     Route: 041
     Dates: start: 20110101, end: 20110101
  4. METOCLOPRAMIDE [Concomitant]
     Indication: ANTIEMETIC SUPPORTIVE CARE
     Route: 048
     Dates: start: 20110728, end: 20110729
  5. TAXOTERE [Suspect]
     Indication: BREAST CANCER
     Route: 041
  6. KEVATRIL [Concomitant]
     Indication: ANTIEMETIC SUPPORTIVE CARE
     Route: 042

REACTIONS (1)
  - VOCAL CORD PARALYSIS [None]
